FAERS Safety Report 17823418 (Version 1)
Quarter: 2020Q2

REPORT INFORMATION
  Report Type: Spontaneous
  Country: US (occurrence: US)
  Receive Date: 20200524
  Receipt Date: 20200524
  Transmission Date: 20200714
  Serious: Yes (Hospitalization, Other)
  Sender: FDA-Public Use
  Company Number: None

PATIENT
  Age: 42 Year
  Sex: Male
  Weight: 131.4 kg

DRUGS (18)
  1. TOPAMAX [Concomitant]
     Active Substance: TOPIRAMATE
  2. TOPIRAMATE. [Suspect]
     Active Substance: TOPIRAMATE
     Indication: SEIZURE
     Route: 048
     Dates: start: 20110117
  3. GABAPENTIN. [Suspect]
     Active Substance: GABAPENTIN
  4. CLONAZEPAM. [Concomitant]
     Active Substance: CLONAZEPAM
  5. LIDOCAINE PATCH [Concomitant]
     Active Substance: LIDOCAINE
  6. GEODON [Concomitant]
     Active Substance: ZIPRASIDONE HYDROCHLORIDE\ZIPRASIDONE MESYLATE
  7. B12 INJECTION [Concomitant]
  8. CELEBREX [Concomitant]
     Active Substance: CELECOXIB
  9. ZOFRAN [Concomitant]
     Active Substance: ONDANSETRON HYDROCHLORIDE
  10. OXYCODONE [Concomitant]
     Active Substance: OXYCODONE
  11. IMITREX [Concomitant]
     Active Substance: SUMATRIPTAN SUCCINATE
  12. RANITIDINE. [Concomitant]
     Active Substance: RANITIDINE
  13. ZOCOR [Concomitant]
     Active Substance: SIMVASTATIN
  14. TOPIRAMATE. [Suspect]
     Active Substance: TOPIRAMATE
     Indication: HEADACHE
     Route: 048
     Dates: start: 20110117
  15. TOPIRAMATE. [Suspect]
     Active Substance: TOPIRAMATE
     Indication: PAIN
     Route: 048
     Dates: start: 20110117
  16. CLONAZEPAM. [Suspect]
     Active Substance: CLONAZEPAM
     Indication: AFFECTIVE DISORDER
     Route: 048
     Dates: start: 20110514
  17. LORATADINE. [Concomitant]
     Active Substance: LORATADINE
  18. LEVOTHYROXINE. [Concomitant]
     Active Substance: LEVOTHYROXINE

REACTIONS (15)
  - Abdominal pain upper [None]
  - Dry skin [None]
  - Arthralgia [None]
  - Abdominal discomfort [None]
  - Drug ineffective [None]
  - Irritability [None]
  - Depressed mood [None]
  - Skin exfoliation [None]
  - Road traffic accident [None]
  - Product substitution issue [None]
  - Dry mouth [None]
  - Influenza like illness [None]
  - Disturbance in attention [None]
  - Tooth loss [None]
  - Nasal congestion [None]

NARRATIVE: CASE EVENT DATE: 20190424
